FAERS Safety Report 9767403 (Version 2)
Quarter: 2013Q4

REPORT INFORMATION
  Report Type: Report from Study
  Country: TR (occurrence: TR)
  Receive Date: 20131217
  Receipt Date: 20131226
  Transmission Date: 20140711
  Serious: Yes (Other)
  Sender: FDA-Public Use
  Company Number: PHHY2013TR143774

PATIENT
  Age: 39 Year
  Sex: Male
  Weight: 138 kg

DRUGS (1)
  1. SANDOSTATIN LAR [Suspect]
     Indication: ACROMEGALY
     Dosage: 20 MG, ONCE EVERY 28 DAYS
     Route: 030
     Dates: start: 20110101

REACTIONS (2)
  - Hyperthyroidism [Unknown]
  - Blood glucose increased [Not Recovered/Not Resolved]
